FAERS Safety Report 6981094 (Version 2)
Quarter: 2014Q1

REPORT INFORMATION
  Report Type: Spontaneous
  Country: US (occurrence: None)
  Receive Date: 20090422
  Receipt Date: 20140224
  Transmission Date: 20141002
  Serious: Yes (Other)
  Sender: FDA-Public Use
  Company Number: 2009S1003234

PATIENT
  Age: 73 Year
  Sex: Female
  Weight: 89.81 kg

DRUGS (5)
  1. FLEET PHOSPHO-SODA ORAL SALINE LAXATIVE, GINGER-LEMON FLAVOR (ORAL SOLUTION) [Suspect]
     Indication: COLONOSCOPY
     Dosage: PO
     Route: 048
     Dates: start: 20070522, end: 20070523
  2. HYZAAR (HYDROCHLOROTHIAZIDE, LOSARTAN POTASSIUM) [Concomitant]
  3. LIPITOR (ATORVASTATIN CALCIUM) [Concomitant]
  4. VICODIN (PARACETAMOL, HYDROCODONE BITARTRATE) [Concomitant]
  5. NEXIUM (ESOMEPRAZOLE MAGNESIUM) [Concomitant]

REACTIONS (9)
  - Renal failure [None]
  - Renal failure chronic [None]
  - Renal failure acute [None]
  - Renal atrophy [None]
  - Renal arteriosclerosis [None]
  - Renal tubular necrosis [None]
  - Hyperparathyroidism [None]
  - Calcinosis [None]
  - Acute phosphate nephropathy [None]
